FAERS Safety Report 9235085 (Version 2)
Quarter: 2013Q2

REPORT INFORMATION
  Report Type: Spontaneous
  Country: NL (occurrence: NL)
  Receive Date: 20130416
  Receipt Date: 20130429
  Transmission Date: 20140414
  Serious: Yes (Other)
  Sender: FDA-Public Use
  Company Number: NL-GILEAD-2013-0073590

PATIENT
  Age: 35 Year
  Sex: Male

DRUGS (1)
  1. CAYSTON [Suspect]
     Indication: PSEUDOMONAS INFECTION
     Dosage: UNK
     Dates: start: 201204, end: 201209

REACTIONS (1)
  - Pulmonary function test decreased [Unknown]
